FAERS Safety Report 14240400 (Version 1)
Quarter: 2017Q4

REPORT INFORMATION
  Report Type: Spontaneous
  Country: US (occurrence: US)
  Receive Date: 20171129
  Receipt Date: 20171129
  Transmission Date: 20180321
  Serious: Yes (Hospitalization, Disabling, Other)
  Sender: FDA-Public Use
  Company Number: None

PATIENT
  Sex: Female
  Weight: 45 kg

DRUGS (1)
  1. CIPROFLOXACIN. [Suspect]
     Active Substance: CIPROFLOXACIN
     Indication: URINARY TRACT INFECTION
     Route: 048

REACTIONS (11)
  - Impaired quality of life [None]
  - Muscular weakness [None]
  - Depression [None]
  - Pain [None]
  - Neuralgia [None]
  - Panic attack [None]
  - Mobility decreased [None]
  - Dyspnoea [None]
  - Tendon pain [None]
  - Paralysis [None]
  - Loss of personal independence in daily activities [None]

NARRATIVE: CASE EVENT DATE: 20170503
